APPROVED DRUG PRODUCT: BENDAMUSTINE HYDROCHLORIDE
Active Ingredient: BENDAMUSTINE HYDROCHLORIDE
Strength: 25MG/VIAL
Dosage Form/Route: POWDER;INTRAVENOUS
Application: A205574 | Product #001 | TE Code: AP
Applicant: ACCORD HEALTHCARE INC
Approved: Dec 7, 2022 | RLD: No | RS: No | Type: RX